FAERS Safety Report 25376314 (Version 1)
Quarter: 2025Q2

REPORT INFORMATION
  Report Type: Spontaneous
  Country: FR (occurrence: FR)
  Receive Date: 20250529
  Receipt Date: 20250529
  Transmission Date: 20250716
  Serious: Yes (Other)
  Sender: SANDOZ
  Company Number: None

PATIENT
  Age: 69 Year
  Sex: Female

DRUGS (4)
  1. ALPRAZOLAM [Suspect]
     Active Substance: ALPRAZOLAM
     Indication: Wrong drug
     Route: 048
     Dates: start: 20240529, end: 20240529
  2. VALPROMIDE [Suspect]
     Active Substance: VALPROMIDE
     Indication: Wrong drug
     Dosage: 300 MG, QD
     Route: 048
     Dates: start: 20240529, end: 20240529
  3. TROPATEPINE HYDROCHLORIDE [Suspect]
     Active Substance: TROPATEPINE HYDROCHLORIDE
     Indication: Wrong drug
     Route: 048
     Dates: start: 20240529, end: 20240529
  4. QUETIAPINE [Suspect]
     Active Substance: QUETIAPINE
     Indication: Wrong drug
     Route: 048
     Dates: start: 20240529, end: 20240529

REACTIONS (2)
  - Somnolence [Recovered/Resolved]
  - Wrong drug [Recovered/Resolved]

NARRATIVE: CASE EVENT DATE: 20240529
